FAERS Safety Report 6846861-8 (Version None)
Quarter: 2010Q3

REPORT INFORMATION
  Report Type: 
  Country: None (occurrence: None)
  Receive Date: 20100715
  Receipt Date: 20070924
  Transmission Date: 20110219
  Serious: No
  Sender: FDA-Public Use
  Company Number: US-PFIZER INC-2007080330

PATIENT
  Sex: Male
  Weight: 80.3 kg

DRUGS (6)
  1. CHANTIX [Suspect]
     Indication: SMOKING CESSATION THERAPY
     Dates: start: 20070801
  2. METFORMIN HCL [Concomitant]
  3. LISINOPRIL [Concomitant]
  4. SIMVASTATIN [Concomitant]
  5. MULTI-VITAMINS [Concomitant]
  6. VITAMIN C [Concomitant]

REACTIONS (1)
  - INSOMNIA [None]
